FAERS Safety Report 5563291-X (Version None)
Quarter: 2007Q4

REPORT INFORMATION
  Report Type: 
  Country: None (occurrence: None)
  Receive Date: 20071217
  Receipt Date: 20071204
  Transmission Date: 20080405
  Serious: Yes (Life-Threatening, Hospitalization)
  Sender: FDA-Public Use
  Company Number: FR-ROCHE-534904

PATIENT
  Age: 66 Year
  Sex: Female

DRUGS (6)
  1. ROCEPHIN [Suspect]
     Indication: PRODUCTIVE COUGH
     Dosage: FORM: INJECTABLE SOLUTION; DOSAGE REGIMEN: ONE DOSE ONCE.
     Route: 042
     Dates: start: 20070502, end: 20070502
  2. IMODIUM [Concomitant]
     Dosage: DOSAGE REGIMEN: 3-4 TABLETS A DAY.
  3. DICODIN [Concomitant]
  4. SERESTA [Concomitant]
     Dosage: DRUG NAME: SERESTA 50
  5. SEROPLEX [Concomitant]
     Dosage: DOSAGE REGIMEN: 0.5 DOSES A DAY.
  6. VERATRAN [Concomitant]

REACTIONS (5)
  - ANAPHYLACTIC SHOCK [None]
  - COMA [None]
  - CYANOSIS [None]
  - DYSPNOEA [None]
  - RASH ERYTHEMATOUS [None]
